FAERS Safety Report 7854604-4 (Version None)
Quarter: 2011Q4

REPORT INFORMATION
  Report Type: 
  Country: None (occurrence: None)
  Receive Date: 20111026
  Receipt Date: 20111012
  Transmission Date: 20120403
  Serious: Yes (Other)
  Sender: FDA-Public Use
  Company Number: NL-MEDIMMUNE-MEDI-0013735

PATIENT
  Sex: Female
  Weight: 8.08 kg

DRUGS (3)
  1. SYNAGIS [Suspect]
     Route: 030
     Dates: start: 20110915, end: 20110915
  2. SYNAGIS [Suspect]
     Route: 030
     Dates: start: 20111012
  3. FERROUS GLUCONATE [Concomitant]

REACTIONS (7)
  - PYREXIA [None]
  - RESPIRATORY TRACT INFECTION [None]
  - NASOPHARYNGITIS [None]
  - HYPOPHAGIA [None]
  - NASAL CONGESTION [None]
  - DYSPNOEA [None]
  - CROUP INFECTIOUS [None]
